FAERS Safety Report 7844534-6 (Version None)
Quarter: 2011Q4

REPORT INFORMATION
  Report Type: 
  Country: None (occurrence: None)
  Receive Date: 20111025
  Receipt Date: 20111017
  Transmission Date: 20120403
  Serious: Yes (Other)
  Sender: FDA-Public Use
  Company Number: US-JNJFOC-20111007251

PATIENT
  Age: 52 Year
  Sex: Female
  Weight: 78.02 kg

DRUGS (5)
  1. METFORMIN HCL [Suspect]
     Indication: DIABETES MELLITUS
     Route: 065
  2. DILANTIN [Suspect]
     Route: 065
  3. TOPAMAX [Suspect]
     Indication: CONVULSION
     Route: 048
  4. DILANTIN [Suspect]
     Indication: CONVULSION
     Route: 065
  5. SYNTHROID [Concomitant]
     Indication: THYROID DISORDER
     Route: 048

REACTIONS (9)
  - TREMOR [None]
  - BLOOD CREATININE INCREASED [None]
  - COORDINATION ABNORMAL [None]
  - OSTEOPOROSIS [None]
  - BONE DENSITY DECREASED [None]
  - ANTICONVULSANT DRUG LEVEL DECREASED [None]
  - OSTEOPENIA [None]
  - BLOOD GLUCOSE INCREASED [None]
  - ARTHRITIS [None]
